FAERS Safety Report 9840060 (Version 1)
Quarter: 2013Q4

REPORT INFORMATION
  Report Type: Spontaneous
  Country: US (occurrence: None)
  Receive Date: 20131206
  Receipt Date: 20131206
  Transmission Date: 20140711
  Serious: Yes (Hospitalization)
  Sender: FDA-Public Use
  Company Number: 362713

PATIENT
  Age: 63 Year
  Sex: Female
  Weight: 80.7 kg

DRUGS (3)
  1. NOVOLOG MIX 70/30 [Suspect]
     Indication: TYPE 2 DIABETES MELLITUS
     Dosage: WITH MEAL
     Route: 058
     Dates: start: 2012
  2. LASIX [Concomitant]
  3. XIFAXAN [Concomitant]

REACTIONS (3)
  - Blood glucose increased [None]
  - Fluid retention [None]
  - Weight increased [None]
